FAERS Safety Report 7068640-1 (Version None)
Quarter: 2010Q4

REPORT INFORMATION
  Report Type: 
  Country: None (occurrence: None)
  Receive Date: 20101028
  Receipt Date: 20101025
  Transmission Date: 20110411
  Serious: Yes (Life-Threatening, Hospitalization, Other)
  Sender: FDA-Public Use
  Company Number: DE-ELI_LILLY_AND_COMPANY-DE201010005875

PATIENT
  Sex: Male

DRUGS (1)
  1. EFFIENT [Suspect]
     Indication: THROMBOSIS IN DEVICE
     Route: 048
     Dates: start: 20101001

REACTIONS (2)
  - COAGULOPATHY [None]
  - THROMBOSIS IN DEVICE [None]
